FAERS Safety Report 11446866 (Version 1)
Quarter: 2015Q3

REPORT INFORMATION
  Report Type: Spontaneous
  Country: US (occurrence: US)
  Receive Date: 20150831
  Receipt Date: 20150831
  Transmission Date: 20151125
  Serious: No
  Sender: FDA-Public Use
  Company Number: US-ELI_LILLY_AND_COMPANY-US200810007520

PATIENT
  Age: 64 Year
  Sex: Female
  Weight: 48.98 kg

DRUGS (14)
  1. CYMBALTA [Suspect]
     Active Substance: DULOXETINE HYDROCHLORIDE
     Indication: DEPRESSION
     Dosage: 30 MG, UNK
     Dates: start: 20080221, end: 20080321
  2. ALTACE [Concomitant]
     Active Substance: RAMIPRIL
     Dosage: 1.5 MG, DAILY (1/D)
  3. PENTASA [Concomitant]
     Active Substance: MESALAMINE
     Dosage: 1000 MG, 2/D
  4. AQUAMEPHYTON [Concomitant]
     Active Substance: PHYTONADIONE
  5. CYMBALTA [Suspect]
     Active Substance: DULOXETINE HYDROCHLORIDE
     Dosage: 80 MG, UNK
     Dates: start: 20080321, end: 20081022
  6. MERCAPTOPURINE. [Concomitant]
     Active Substance: MERCAPTOPURINE
     Dosage: 50 MG, DAILY (1/D)
  7. ENTOCORT [Concomitant]
     Active Substance: BUDESONIDE
     Dosage: 9 MG, DAILY (1/D)
  8. MULTIVITAMIN [Concomitant]
     Active Substance: VITAMINS
  9. NITROGLYCERIN. [Concomitant]
     Active Substance: NITROGLYCERIN
     Indication: ANGINA PECTORIS
     Dosage: UNK, AS NEEDED
  10. NORVASC [Concomitant]
     Active Substance: AMLODIPINE BESYLATE
     Dosage: 5 MG, 2/D
  11. VITAMIN B12 [Concomitant]
     Active Substance: CYANOCOBALAMIN
  12. XANAX [Concomitant]
     Active Substance: ALPRAZOLAM
     Dosage: 0.25 MG, 3/D
  13. HYDROCODONE [Concomitant]
     Active Substance: HYDROCODONE
     Dosage: UNK, AS NEEDED
  14. OMEPRAZOLE. [Concomitant]
     Active Substance: OMEPRAZOLE
     Dosage: 20 MG, 2/D

REACTIONS (1)
  - Tardive dyskinesia [Not Recovered/Not Resolved]

NARRATIVE: CASE EVENT DATE: 20081015
